FAERS Safety Report 12888782 (Version 1)
Quarter: 2016Q4

REPORT INFORMATION
  Report Type: Spontaneous
  Country: US (occurrence: US)
  Receive Date: 20161027
  Receipt Date: 20161027
  Transmission Date: 20170207
  Serious: No
  Sender: FDA-Public Use
  Company Number: US-GLAXOSMITHKLINE-US2016GSK157389

PATIENT
  Sex: Female

DRUGS (1)
  1. VENTOLIN HFA [Suspect]
     Active Substance: ALBUTEROL SULFATE
     Indication: VIRAL UPPER RESPIRATORY TRACT INFECTION
     Dosage: UNK

REACTIONS (5)
  - Wrong technique in product usage process [Unknown]
  - Device use error [Unknown]
  - Off label use [Unknown]
  - Device issue [Unknown]
  - Product use issue [Unknown]
